FAERS Safety Report 11310470 (Version 3)
Quarter: 2015Q3

REPORT INFORMATION
  Report Type: Spontaneous
  Country: US (occurrence: US)
  Receive Date: 20150724
  Receipt Date: 20150815
  Transmission Date: 20151125
  Serious: No
  Sender: FDA-Public Use
  Company Number: PHEH2015US012189

PATIENT
  Age: 65 Year
  Sex: Female

DRUGS (1)
  1. SANDOSTATIN LAR DEPOT [Suspect]
     Active Substance: OCTREOTIDE ACETATE
     Indication: COLON CANCER
     Dosage: 30 MG, QMO
     Route: 030
     Dates: start: 201501

REACTIONS (2)
  - Product quality issue [Recovered/Resolved]
  - Needle issue [Unknown]

NARRATIVE: CASE EVENT DATE: 20150616
